FAERS Safety Report 17579697 (Version 1)
Quarter: 2020Q1

REPORT INFORMATION
  Report Type: Spontaneous
  Country: NL (occurrence: NL)
  Receive Date: 20200325
  Receipt Date: 20200325
  Transmission Date: 20200409
  Serious: Yes (Other)
  Sender: FDA-Public Use
  Company Number: NL-TEVA-2020-NL-1208989

PATIENT
  Age: 66 Year
  Sex: Female
  Weight: 66 kg

DRUGS (21)
  1. BLEOMYCINE [Suspect]
     Active Substance: BLEOMYCIN SULFATE
     Indication: HODGKIN^S DISEASE
     Dosage: INJECTION/INFUSION, 1 UNITS PER UNIT, 1 TIME EVERY 2 WEEKS, 10MG/M2
     Route: 065
     Dates: start: 20200213
  2. FLUVOXAMINE 50 MG ORAAL OM DE DAG; [Concomitant]
  3. FOLIUMZUUR 5 MG ORAAL 1X DAAGS [Concomitant]
  4. D-CURA 1 STUK ORAAL ELKE 14 DGN; [Concomitant]
  5. POVIDON 1 DRUPPEL OCULAIR 2X DAAGS; [Concomitant]
  6. LEVOCETIRIZINE 1 STUK ORAAL ZN 2X DD; [Concomitant]
  7. MAGNESIUMGLUCONAAT 500 MG ORAAL 3X DAAGS; [Concomitant]
  8. KOELZALF 3X PER DAG OP DE HUID AANBRENGEN; [Concomitant]
  9. OMEPRAZOL 1 CAPSULE ORAAL 1X DAAGS; [Concomitant]
  10. SIMPLEX BASISZALF VOLGENS VOORSCHRIFT SPECIALIST. (ONBEPERKT GEBRUIKEN [Concomitant]
  11. TRIAMCINOLONACETONIDE 2 (TWEE) KEER PER DAG OP DE HUID AANBRENGEN [Concomitant]
  12. DERMOVATE 1X DAAGS OP DE HUID AANBRENGEN; [Concomitant]
  13. PREDNISOLON 30 MG ORAAL 1X DAAGS; [Concomitant]
  14. MACROGOL/ZOUTEN 1 SACHET ORAAL ZN 3X DD; [Concomitant]
  15. OXAZEPAM 10 MG ORAAL 2X DAAGS; [Concomitant]
  16. KALIUMCHLORIDE 600 MG ORAAL 3X DAAGS; [Concomitant]
  17. SPIRONOLACTON 25 MG ORAAL 1X DAAGS; SPIRONOLACTON 50 MG ORAAL 1X DAAGS [Concomitant]
  18. FLUTICASON 27,5 MCG NASAAL 1X DAAGS; [Concomitant]
  19. SALMETEROL/FLUTICASON INHALEREN 2 (TWEE) KEER PER DAG.; [Concomitant]
  20. FLUCONAZOL 150 MG ORAAL 1X DAAGS; 5 DAGEN [Concomitant]
  21. BETAHISTINE 1 STUK ORAAL 3X DAAGS; [Concomitant]

REACTIONS (1)
  - Transient ischaemic attack [Recovered/Resolved]

NARRATIVE: CASE EVENT DATE: 20200223
